FAERS Safety Report 10010350 (Version 2)
Quarter: 2014Q1

REPORT INFORMATION
  Report Type: Spontaneous
  Country: US (occurrence: US)
  Receive Date: 20140314
  Receipt Date: 20140328
  Transmission Date: 20141002
  Serious: No
  Sender: FDA-Public Use
  Company Number: US-AMGEN-USASP2014016521

PATIENT
  Sex: Female
  Weight: 40.82 kg

DRUGS (1)
  1. PROLIA [Suspect]
     Indication: OSTEOPOROSIS POSTMENOPAUSAL
     Dosage: 60 MG, Q6MO
     Route: 058
     Dates: start: 20140206

REACTIONS (4)
  - Paraesthesia [Recovered/Resolved]
  - Hot flush [Recovered/Resolved]
  - Weight decreased [Unknown]
  - Ageusia [Recovered/Resolved]
